FAERS Safety Report 6785887-X (Version None)
Quarter: 2010Q2

REPORT INFORMATION
  Report Type: 
  Country: None (occurrence: None)
  Receive Date: 20100621
  Receipt Date: 20100621
  Transmission Date: 20101027
  Serious: Yes (Other)
  Sender: FDA-Public Use
  Company Number: None

PATIENT
  Age: 25 Year
  Sex: Female
  Weight: 119.296 kg

DRUGS (1)
  1. NUVARING [Suspect]
     Indication: CONTRACEPTION
     Dosage: ETONEGESTRAL 0.120 ESTRIOL0.015 THREE WEEKS VAGINAL
     Route: 067
     Dates: start: 20090401, end: 20100411

REACTIONS (1)
  - THROMBOSIS [None]
